FAERS Safety Report 23448267 (Version 3)
Quarter: 2024Q2

REPORT INFORMATION
  Report Type: Report from Study
  Country: CA (occurrence: CA)
  Receive Date: 20240127
  Receipt Date: 20240426
  Transmission Date: 20240716
  Serious: Yes (Other)
  Sender: FDA-Public Use
  Company Number: CA-JNJFOC-20240155244

PATIENT
  Age: 48 Year
  Sex: Male

DRUGS (2)
  1. IBRUTINIB [Suspect]
     Active Substance: IBRUTINIB
     Indication: Chronic lymphocytic leukaemia
     Route: 048
  2. IBRUTINIB [Suspect]
     Active Substance: IBRUTINIB
     Indication: Chronic lymphocytic leukaemia
     Route: 048
     Dates: start: 20190507, end: 20240418

REACTIONS (3)
  - Tubulointerstitial nephritis [Unknown]
  - Therapeutic procedure [Unknown]
  - Oedematous kidney [Unknown]

NARRATIVE: CASE EVENT DATE: 20240101
